FAERS Safety Report 7486109-7 (Version None)
Quarter: 2011Q2

REPORT INFORMATION
  Report Type: 
  Country: None (occurrence: None)
  Receive Date: 20110517
  Receipt Date: 20110509
  Transmission Date: 20111010
  Serious: Yes (Hospitalization)
  Sender: FDA-Public Use
  Company Number: CH-GENENTECH-318794

PATIENT
  Sex: Female

DRUGS (2)
  1. RITUXAN [Suspect]
     Dosage: UNK
     Route: 042
     Dates: start: 20101101
  2. RITUXAN [Suspect]
     Indication: RHEUMATOID ARTHRITIS
     Dosage: UNK
     Route: 042
     Dates: start: 20101001

REACTIONS (1)
  - LYMPHOEDEMA [None]
